FAERS Safety Report 13738510 (Version 1)
Quarter: 2017Q3

REPORT INFORMATION
  Report Type: Spontaneous
  Country: US (occurrence: US)
  Receive Date: 20170710
  Receipt Date: 20170710
  Transmission Date: 20171127
  Serious: Yes (Other)
  Sender: FDA-Public Use
  Company Number: US-SAOL THERAPEUTICS-2017SAO00057

PATIENT
  Sex: Female

DRUGS (2)
  1. BACLOFEN. [Suspect]
     Active Substance: BACLOFEN
     Dosage: 450.2 ?G, \DAY
     Route: 037
     Dates: start: 20170109
  2. BACLOFEN. [Suspect]
     Active Substance: BACLOFEN
     Dosage: 924 ?G, \DAY
     Route: 037

REACTIONS (2)
  - Device infusion issue [Recovered/Resolved]
  - Therapeutic response decreased [Recovered/Resolved]
